FAERS Safety Report 9690367 (Version 1)
Quarter: 2013Q4

REPORT INFORMATION
  Report Type: Spontaneous
  Country: US (occurrence: None)
  Receive Date: 20131114
  Receipt Date: 20131114
  Transmission Date: 20140711
  Serious: Yes (Hospitalization)
  Sender: FDA-Public Use
  Company Number: None

PATIENT
  Age: 64 Year
  Sex: Male
  Weight: 71 kg

DRUGS (4)
  1. NULOJIX [Suspect]
     Indication: RENAL TRANSPLANT
     Route: 042
     Dates: start: 20131031
  2. CELLCEPT [Suspect]
     Indication: RENAL TRANSPLANT
     Route: 048
     Dates: start: 20131101
  3. ALEMTUZUMAB [Concomitant]
  4. METHYLPREDNISONE [Concomitant]

REACTIONS (6)
  - Oedema peripheral [None]
  - Abdominal pain [None]
  - Treatment noncompliance [None]
  - Hydronephrosis [None]
  - Haematoma [None]
  - Complications of transplanted kidney [None]
